FAERS Safety Report 7158348-6 (Version None)
Quarter: 2010Q4

REPORT INFORMATION
  Report Type: 
  Country: None (occurrence: None)
  Receive Date: 20101214
  Receipt Date: 20100208
  Transmission Date: 20110411
  Serious: No
  Sender: FDA-Public Use
  Company Number: US-PFIZER INC-2009312447

PATIENT
  Sex: Female
  Weight: 89.4 kg

DRUGS (7)
  1. ARTHROTEC [Suspect]
     Indication: ARTHRITIS
     Dosage: 50 MG, 2X/DAY
     Route: 048
     Dates: start: 20091216
  2. VALSARTAN [Concomitant]
     Indication: HYPERTENSION
     Dosage: 160 MG, UNK
  3. TAMBOCOR [Concomitant]
     Indication: HEART RATE IRREGULAR
     Dosage: UNK
  4. ATIVAN [Concomitant]
     Dosage: 0.5 MG, UNK
  5. CRESTOR [Concomitant]
     Dosage: 1.25 MG, UNK
  6. METFORMIN HYDROCHLORIDE [Concomitant]
     Dosage: 500 MG, UNK
  7. FEMHRT [Concomitant]
     Dosage: 1/5MG

REACTIONS (4)
  - ABDOMINAL DISTENSION [None]
  - ABDOMINAL PAIN UPPER [None]
  - MUSCLE SPASMS [None]
  - NAUSEA [None]
